FAERS Safety Report 8963666 (Version 2)
Quarter: 2013Q2

REPORT INFORMATION
  Report Type: Spontaneous
  Country: US (occurrence: US)
  Receive Date: 20121214
  Receipt Date: 20130425
  Transmission Date: 20140414
  Serious: Yes (Hospitalization)
  Sender: FDA-Public Use
  Company Number: US-BAYER-2012-130172

PATIENT
  Age: 46 Year
  Sex: Female
  Weight: 129.25 kg

DRUGS (10)
  1. YAZ [Suspect]
     Dosage: UNK
     Dates: start: 200710, end: 200712
  2. PROVENTIL [Concomitant]
     Dosage: UNK
     Dates: start: 2002, end: 2012
  3. MOTRIN [Concomitant]
     Dosage: UNK
     Dates: start: 2002, end: 2012
  4. BACTRIM [Concomitant]
     Dosage: UNK
     Dates: start: 2002, end: 2012
  5. AMOXICILLIN [Concomitant]
     Dosage: UNK
     Dates: start: 2002, end: 2012
  6. RIFAMPIN [Concomitant]
     Dosage: UNK
     Dates: start: 2006, end: 2008
  7. LEVOTHYROXINE [Concomitant]
     Indication: HYPOTHYROIDISM
     Dosage: 150 MG, UNK
     Dates: start: 2004
  8. SYNTHROID [Concomitant]
     Dosage: 112 ?G, UNK
     Dates: start: 20070522, end: 20071205
  9. VENTOLIN HFA [Concomitant]
     Dosage: 90 ?G, UNK
     Dates: start: 20071008, end: 20071217
  10. FLUTICASONE [Concomitant]
     Dosage: 50 ?G, UNK
     Route: 045
     Dates: start: 20071008

REACTIONS (5)
  - Deep vein thrombosis [None]
  - Thrombosis [None]
  - Injury [None]
  - Pain [None]
  - Muscle spasms [None]
